FAERS Safety Report 9731262 (Version 2)
Quarter: 2013Q4

REPORT INFORMATION
  Report Type: Spontaneous
  Country: US (occurrence: US)
  Receive Date: 20131205
  Receipt Date: 20131205
  Transmission Date: 20140711
  Serious: Yes (Life-Threatening, Hospitalization, Other)
  Sender: FDA-Public Use
  Company Number: US-BEH-2011030029

PATIENT
  Age: 51 Year
  Sex: Female
  Weight: 60 kg

DRUGS (13)
  1. ZEMAIRA [Suspect]
     Indication: ALPHA-1 ANTI-TRYPSIN DEFICIENCY
     Dosage: MAXIMUN RATE 0.08 ML PER KG PER MIN (4.9 ML PER MIN)
     Route: 042
     Dates: start: 20091217
  2. ZEMAIRA [Suspect]
     Indication: EMPHYSEMA
     Dosage: MAXIMUN RATE 0.08 ML PER KG PER MIN (4.9 ML PER MIN)
     Route: 042
     Dates: start: 20091217
  3. FERROUS SULFATE [Concomitant]
  4. VITAMIN D [Concomitant]
  5. UNIPHYL [Concomitant]
  6. ALENDRONATE [Concomitant]
  7. CALCIUM WITH D [Concomitant]
  8. SYMBICORT [Concomitant]
  9. PROMETHAZINE [Concomitant]
  10. IPRATROPIUM BR [Concomitant]
  11. ALBUTEROL [Concomitant]
  12. SPIRIVA [Concomitant]
  13. AMITRIPTYLINE [Concomitant]

REACTIONS (3)
  - Urinary tract infection [Unknown]
  - Pneumonia [Unknown]
  - Infection [Unknown]
